FAERS Safety Report 17804432 (Version 1)
Quarter: 2020Q2

REPORT INFORMATION
  Report Type: Spontaneous
  Country: FR (occurrence: FR)
  Receive Date: 20200519
  Receipt Date: 20200519
  Transmission Date: 20200714
  Serious: Yes (Hospitalization)
  Sender: FDA-Public Use
  Company Number: NVSC2020FR134914

PATIENT
  Age: 16 Year
  Sex: Female
  Weight: 47 kg

DRUGS (2)
  1. TEGRETOL [Suspect]
     Active Substance: CARBAMAZEPINE
     Indication: PARTIAL SEIZURES
     Dosage: 0.5 CP LE MATIN, 1CP LE SOIR
     Route: 048
     Dates: start: 201602
  2. VIMPAT [Suspect]
     Active Substance: LACOSAMIDE
     Indication: PARTIAL SEIZURES
     Dosage: 100 MG LE MATIN 150 MG LE SOIR
     Route: 048
     Dates: start: 201703

REACTIONS (4)
  - Atrioventricular block first degree [Unknown]
  - Pericardial effusion [Recovered/Resolved]
  - Abdominal pain upper [Recovered/Resolved]
  - Pancytopenia [Unknown]

NARRATIVE: CASE EVENT DATE: 201801
